FAERS Safety Report 22339704 (Version 1)
Quarter: 2023Q2

REPORT INFORMATION
  Report Type: Spontaneous
  Country: US (occurrence: US)
  Receive Date: 20230518
  Receipt Date: 20230518
  Transmission Date: 20230721
  Serious: Yes (Hospitalization, Other)
  Sender: FDA-Public Use
  Company Number: US-BRISTOL-MYERS SQUIBB COMPANY-2023-067748

PATIENT
  Age: 71 Year
  Sex: Male

DRUGS (1)
  1. REVLIMID [Suspect]
     Active Substance: LENALIDOMIDE
     Indication: Plasma cell myeloma
     Dosage: FREQUENCY- DAILY FOR 7 DAYS, THEN 7 DAYS OFF.
     Route: 048
     Dates: start: 20221012

REACTIONS (4)
  - Sepsis [Unknown]
  - Pneumonia [Unknown]
  - Electrolyte imbalance [Unknown]
  - Off label use [Unknown]

NARRATIVE: CASE EVENT DATE: 20230425
